FAERS Safety Report 7817176-6 (Version None)
Quarter: 2011Q4

REPORT INFORMATION
  Report Type: 
  Country: None (occurrence: None)
  Receive Date: 20111017
  Receipt Date: 20111017
  Transmission Date: 20120403
  Serious: No
  Sender: FDA-Public Use
  Company Number: None

PATIENT
  Age: 42 Year
  Sex: Male
  Weight: 90.718 kg

DRUGS (1)
  1. PROPECIA [Suspect]
     Indication: ANDROGENETIC ALOPECIA
     Dates: start: 20011001, end: 20110911

REACTIONS (5)
  - ORGASM ABNORMAL [None]
  - SEMEN VOLUME DECREASED [None]
  - ERECTILE DYSFUNCTION [None]
  - LIBIDO DECREASED [None]
  - CORONARY ARTERY DISEASE [None]
